FAERS Safety Report 12413748 (Version 1)
Quarter: 2016Q2

REPORT INFORMATION
  Report Type: Spontaneous
  Country: US (occurrence: US)
  Receive Date: 20160527
  Receipt Date: 20160527
  Transmission Date: 20160815
  Serious: No
  Sender: FDA-Public Use
  Company Number: US-SUPERNUS PHARMACEUTICALS, INC.-2016SUP00062

PATIENT
  Age: 64 Year
  Sex: Female
  Weight: 74.83 kg

DRUGS (3)
  1. PREDNISONE EYE DROP 1% (PACIFIC PHARMA, NDC 60758-119-05) [Suspect]
     Active Substance: PREDNISONE
     Indication: OCULAR HYPERAEMIA
     Dosage: UNK
  2. SEVERAL SUPPLEMENTS (UNSPECIFIED) [Concomitant]
     Dosage: UNK, 1X/DAY
  3. TROKENDI XR [Suspect]
     Active Substance: TOPIRAMATE
     Indication: HEADACHE
     Dosage: 100 MG, 1X/DAY
     Route: 048
     Dates: start: 2015

REACTIONS (4)
  - Memory impairment [Not Recovered/Not Resolved]
  - Ocular hyperaemia [Not Recovered/Not Resolved]
  - Off label use [Not Recovered/Not Resolved]
  - Intraocular pressure increased [Recovered/Resolved]

NARRATIVE: CASE EVENT DATE: 201503
